FAERS Safety Report 7244072-8 (Version None)
Quarter: 2011Q1

REPORT INFORMATION
  Report Type: 
  Country: None (occurrence: None)
  Receive Date: 20110119
  Receipt Date: 20110119
  Transmission Date: 20110831
  Serious: No
  Sender: FDA-Public Use
  Company Number: None

PATIENT
  Age: 42 Year
  Sex: Female

DRUGS (1)
  1. ALCOHOL PADS [Suspect]
     Indication: INTRAVENOUS CATHETER MANAGEMENT
     Dosage: DAILY TOPICAL
     Route: 061
     Dates: start: 20101207, end: 20101231

REACTIONS (1)
  - CATHETER SITE INFECTION [None]
